FAERS Safety Report 5117574-8 (Version None)
Quarter: 2006Q3

REPORT INFORMATION
  Report Type: 
  Country: None (occurrence: None)
  Receive Date: 20060926
  Receipt Date: 20060907
  Transmission Date: 20061208
  Serious: Yes (Disabling)
  Sender: FDA-Public Use
  Company Number: US200609002014

PATIENT
  Age: 67 Year
  Sex: Female

DRUGS (2)
  1. FORTEO [Suspect]
     Indication: OSTEOPOROSIS
     Dates: start: 20060809
  2. FORTEO [Concomitant]

REACTIONS (11)
  - CONDITION AGGRAVATED [None]
  - DIPLOPIA [None]
  - DIZZINESS [None]
  - EXOPHTHALMOS [None]
  - EYELID OEDEMA [None]
  - HYPOAESTHESIA [None]
  - HYPOAESTHESIA FACIAL [None]
  - IMPAIRED DRIVING ABILITY [None]
  - PHARMACEUTICAL PRODUCT COMPLAINT [None]
  - SWELLING FACE [None]
  - VISUAL ACUITY REDUCED [None]
